FAERS Safety Report 4550999-8 (Version None)
Quarter: 2005Q1

REPORT INFORMATION
  Report Type: 
  Country: None (occurrence: None)
  Receive Date: 20050113
  Receipt Date: 20040123
  Transmission Date: 20050727
  Serious: No
  Sender: FDA-Public Use
  Company Number: US-BRISTOL-MYERS SQUIBB COMPANY-12487088

PATIENT
  Age: 72 Year
  Sex: Male

DRUGS (5)
  1. CARDIOLITE [Suspect]
     Indication: CARDIAC STRESS TEST
     Dates: start: 20040115, end: 20040115
  2. ATENOLOL [Concomitant]
  3. SIMVASTATIN [Concomitant]
  4. COUMADIN [Concomitant]
  5. CLONIDINE [Concomitant]

REACTIONS (1)
  - COUGH [None]
